FAERS Safety Report 11344742 (Version 2)
Quarter: 2015Q3

REPORT INFORMATION
  Report Type: Spontaneous
  Country: BR (occurrence: BR)
  Receive Date: 20150806
  Receipt Date: 20150818
  Transmission Date: 20151125
  Serious: Yes (Other)
  Sender: FDA-Public Use
  Company Number: BR-PFIZER INC-2015257955

PATIENT
  Age: 13 Year
  Sex: Male
  Weight: 70 kg

DRUGS (4)
  1. UPLYSO [Suspect]
     Active Substance: TALIGLUCERASE ALFA
     Dosage: 60 U/KG EVERY 15 DAYS
     Dates: start: 2014
  2. RISPERIDONE. [Concomitant]
     Active Substance: RISPERIDONE
     Dosage: UNK
  3. UPLYSO [Suspect]
     Active Substance: TALIGLUCERASE ALFA
     Indication: GAUCHER^S DISEASE TYPE III
     Dosage: 30 U/KG, WEEKLY
     Dates: start: 201010
  4. FRISIUM [Concomitant]
     Active Substance: CLOBAZAM
     Dosage: UNK

REACTIONS (3)
  - Generalised tonic-clonic seizure [Unknown]
  - Seizure [Unknown]
  - Off label use [Not Recovered/Not Resolved]

NARRATIVE: CASE EVENT DATE: 2015
